FAERS Safety Report 4903174-9 (Version None)
Quarter: 2006Q1

REPORT INFORMATION
  Report Type: 
  Country: None (occurrence: None)
  Receive Date: 20060207
  Receipt Date: 20060127
  Transmission Date: 20060701
  Serious: Yes (Hospitalization)
  Sender: FDA-Public Use
  Company Number: FR-ABBOTT-06P-056-0323626-00

PATIENT
  Age: 49 Year
  Sex: Female
  Weight: 108 kg

DRUGS (3)
  1. HUMIRA [Suspect]
     Indication: RHEUMATOID ARTHRITIS
     Route: 058
     Dates: start: 20050628, end: 20051208
  2. PREDNISONE [Suspect]
     Indication: RHEUMATOID ARTHRITIS
     Route: 048
     Dates: start: 20051215
  3. METHOTREXATE [Suspect]
     Indication: RHEUMATOID ARTHRITIS
     Route: 048
     Dates: start: 20051215, end: 20051231

REACTIONS (6)
  - BACTERIAL INFECTION [None]
  - CHOLECYSTITIS [None]
  - CHOLELITHIASIS [None]
  - ENTEROBACTER INFECTION [None]
  - PANCREATIC ENZYMES INCREASED [None]
  - PSEUDOMONAS INFECTION [None]
